FAERS Safety Report 14329037 (Version 3)
Quarter: 2018Q1

REPORT INFORMATION
  Report Type: Report from Study
  Country: IT (occurrence: IT)
  Receive Date: 20171227
  Receipt Date: 20180117
  Transmission Date: 20180509
  Serious: Yes (Other)
  Sender: FDA-Public Use
  Company Number: IT-PFIZER INC-2017544373

PATIENT
  Age: 66 Year
  Sex: Male
  Weight: 69 kg

DRUGS (4)
  1. FLUOROURACIL. [Suspect]
     Active Substance: FLUOROURACIL
     Indication: COLON CANCER
     Dosage: 1700 MG, CYCLIC
     Route: 042
     Dates: start: 20161123, end: 20170221
  2. VECTIBIX [Suspect]
     Active Substance: PANITUMUMAB
     Indication: COLON CANCER
     Dosage: 450 MG, CYCLIC
     Route: 042
     Dates: start: 20161128
  3. OXALIPLATIN. [Suspect]
     Active Substance: OXALIPLATIN
     Indication: COLON CANCER
     Dosage: 1700 MG, CYCLIC
     Route: 042
     Dates: start: 20161122, end: 20170221
  4. CALCIUM FOLINATE [Suspect]
     Active Substance: LEUCOVORIN CALCIUM
     Indication: COLON CANCER
     Dosage: 1700 MG, CYCLIC
     Route: 042
     Dates: start: 20161123, end: 20170221

REACTIONS (16)
  - Dermatitis acneiform [Recovered/Resolved]
  - Erythema multiforme [Recovered/Resolved]
  - Paronychia [Recovered/Resolved]
  - Neuralgia [Recovered/Resolved]
  - Astringent therapy [Recovered/Resolved]
  - Skin toxicity [Recovered/Resolved]
  - Erythema [Recovered/Resolved]
  - Skin exfoliation [Recovered/Resolved]
  - Dry skin [Recovered/Resolved]
  - Product use issue [Unknown]
  - Rash [Recovered/Resolved]
  - Diarrhoea [Unknown]
  - Dermatitis acneiform [Unknown]
  - Nausea [Recovered/Resolved]
  - Pyrexia [Recovered/Resolved]
  - Supraventricular tachycardia [Recovered/Resolved]

NARRATIVE: CASE EVENT DATE: 20170102
